FAERS Safety Report 8328436-7 (Version None)
Quarter: 2012Q2

REPORT INFORMATION
  Report Type: 
  Country: None (occurrence: None)
  Receive Date: 20120502
  Receipt Date: 20120417
  Transmission Date: 20120825
  Serious: Yes (Disabling, Other)
  Sender: FDA-Public Use
  Company Number: DK-AMGEN-DNKSP2012025702

PATIENT
  Age: 61 Year
  Sex: Male

DRUGS (5)
  1. METHOTREXATE SODIUM [Suspect]
     Indication: RHEUMATOID ARTHRITIS
     Dosage: UNK
     Dates: start: 20070801
  2. SULFASALAZINE [Concomitant]
     Dosage: UNK
     Dates: start: 19990101
  3. PREDNISOLONE [Concomitant]
     Dosage: UNK
     Dates: start: 19990101
  4. METHOTREXATE SODIUM [Suspect]
     Dosage: UNK
     Dates: start: 20080101
  5. ENBREL [Suspect]
     Indication: RHEUMATOID ARTHRITIS
     Dosage: UNK
     Dates: start: 20090921

REACTIONS (9)
  - PULMONARY FIBROSIS [None]
  - MYALGIA [None]
  - INTERSTITIAL LUNG DISEASE [None]
  - PYREXIA [None]
  - DYSPNOEA [None]
  - PNEUMONIA [None]
  - FATIGUE [None]
  - MALAISE [None]
  - COUGH [None]
